FAERS Safety Report 22140525 (Version 1)
Quarter: 2023Q1

REPORT INFORMATION
  Report Type: Spontaneous
  Country: CN (occurrence: CN)
  Receive Date: 20230327
  Receipt Date: 20230327
  Transmission Date: 20230418
  Serious: Yes (Hospitalization)
  Sender: FDA-Public Use
  Company Number: CN-JNJFOC-20230351472

PATIENT
  Age: 77 Year
  Sex: Male

DRUGS (1)
  1. SPORANOX [Suspect]
     Active Substance: ITRACONAZOLE
     Indication: Antifungal treatment
     Route: 048
     Dates: start: 20230311, end: 20230312

REACTIONS (2)
  - Altered state of consciousness [Recovering/Resolving]
  - Speech disorder [Recovering/Resolving]

NARRATIVE: CASE EVENT DATE: 20230311
